FAERS Safety Report 6217310-8 (Version None)
Quarter: 2009Q2

REPORT INFORMATION
  Report Type: 
  Country: None (occurrence: None)
  Receive Date: 20090608
  Receipt Date: 20090529
  Transmission Date: 20091009
  Serious: Yes (Hospitalization)
  Sender: FDA-Public Use
  Company Number: FR-PFIZER INC-2009177537

PATIENT
  Age: 60 Year

DRUGS (1)
  1. DOXAZOSIN MESILATE [Suspect]
     Indication: PROSTATIC ADENOMA
     Dosage: 1 TABLET DAILY

REACTIONS (2)
  - BRONCHITIS [None]
  - INTESTINAL POLYP [None]
